FAERS Safety Report 9578761 (Version 1)
Quarter: 2013Q4

REPORT INFORMATION
  Report Type: Spontaneous
  Country: US (occurrence: US)
  Receive Date: 20131001
  Receipt Date: 20131001
  Transmission Date: 20140711
  Serious: No
  Sender: FDA-Public Use
  Company Number: US-AMGEN-USASP2013015215

PATIENT
  Age: 57 Year
  Sex: Male
  Weight: 87.08 kg

DRUGS (10)
  1. ENBREL [Suspect]
     Indication: PSORIATIC ARTHROPATHY
     Dosage: 50 MG, QWK
     Route: 058
  2. IBUPROFEN [Concomitant]
     Dosage: 200 MG, UNK
  3. ASA [Concomitant]
     Dosage: 81 MG, UNK
  4. GLIMEPIRIDE [Concomitant]
     Dosage: 1 MG, UNK
  5. METFORMIN [Concomitant]
     Dosage: 850 MG, UNK
  6. LISINOPRIL [Concomitant]
     Dosage: 2.5 MG, UNK
  7. CINNAMON                           /01647501/ [Concomitant]
     Dosage: 500 MG, UNK
  8. FISH OIL [Concomitant]
     Dosage: UNK
  9. FLAXSEED OIL [Concomitant]
     Dosage: 1000 MG, UNK
  10. VITAMIN D3 [Concomitant]
     Dosage: 1000 UNIT, UNK

REACTIONS (1)
  - Nasopharyngitis [Recovering/Resolving]
